FAERS Safety Report 6121034-5 (Version None)
Quarter: 2009Q1

REPORT INFORMATION
  Report Type: 
  Country: None (occurrence: None)
  Receive Date: 20090317
  Receipt Date: 20090307
  Transmission Date: 20090719
  Serious: Yes (Other)
  Sender: FDA-Public Use
  Company Number: CA-ABBOTT-09P-028-0501057-00

PATIENT
  Sex: Female
  Weight: 70.37 kg

DRUGS (5)
  1. HUMIRA [Suspect]
     Indication: RHEUMATOID ARTHRITIS
     Route: 058
     Dates: start: 20060829, end: 20080116
  2. BARLEY GREEN [Concomitant]
     Indication: DRUG USE FOR UNKNOWN INDICATION
  3. COD LIVER OIL [Concomitant]
     Indication: DRUG USE FOR UNKNOWN INDICATION
  4. TYLENOL W/ CODEINE NO. 3 [Concomitant]
     Indication: DRUG USE FOR UNKNOWN INDICATION
     Route: 048
  5. ASPIRIN [Concomitant]
     Indication: DRUG USE FOR UNKNOWN INDICATION

REACTIONS (2)
  - KNEE ARTHROPLASTY [None]
  - MUSCULOSKELETAL PAIN [None]
